FAERS Safety Report 9242985 (Version 1)
Quarter: 2013Q2

REPORT INFORMATION
  Report Type: Spontaneous
  Country: BR (occurrence: BR)
  Receive Date: 20130420
  Receipt Date: 20130420
  Transmission Date: 20140414
  Serious: Yes (Other)
  Sender: FDA-Public Use
  Company Number: BR-BRISTOL-MYERS SQUIBB COMPANY-18786848

PATIENT
  Age: 63 Year
  Sex: Male

DRUGS (2)
  1. APROZIDE [Suspect]
     Indication: HYPERTENSION
     Dosage: TAB
     Route: 048
     Dates: start: 200812
  2. CRESTOR [Concomitant]
     Dates: start: 201301

REACTIONS (2)
  - Chest injury [Recovered/Resolved]
  - Venous occlusion [Recovered/Resolved]
